FAERS Safety Report 7791562-5 (Version None)
Quarter: 2011Q3

REPORT INFORMATION
  Report Type: 
  Country: None (occurrence: None)
  Receive Date: 20110930
  Receipt Date: 20110930
  Transmission Date: 20111222
  Serious: Yes (Disabling)
  Sender: FDA-Public Use
  Company Number: None

PATIENT
  Age: 66 Year
  Sex: Female
  Weight: 91.6266 kg

DRUGS (1)
  1. LEVOFLOXACIN [Suspect]
     Indication: BURN INFECTION
     Dosage: 1 DAILY
     Dates: start: 20110822

REACTIONS (5)
  - NECK PAIN [None]
  - MUSCULOSKELETAL PAIN [None]
  - FEELING ABNORMAL [None]
  - MOVEMENT DISORDER [None]
  - PAIN IN EXTREMITY [None]
